FAERS Safety Report 4338710-7 (Version None)
Quarter: 2004Q2

REPORT INFORMATION
  Report Type: 
  Country: None (occurrence: None)
  Receive Date: 20040409
  Receipt Date: 20040329
  Transmission Date: 20050107
  Serious: Yes (Hospitalization)
  Sender: FDA-Public Use
  Company Number: US070794

PATIENT
  Age: 47 Year
  Sex: Female
  Weight: 90.5 kg

DRUGS (5)
  1. SENSIPAR [Suspect]
     Indication: HYPERPARATHYROIDISM SECONDARY
     Dosage: 120 MG, 1 IN 1 DAYS, PO
     Route: 048
     Dates: start: 20020614
  2. ISOPHANE INSULIN [Concomitant]
  3. INSULIN HUMAN [Concomitant]
  4. NEHRO-CAPS [Concomitant]
  5. OMEPRAZOLE [Concomitant]

REACTIONS (9)
  - ACUTE CORONARY SYNDROME [None]
  - BLOOD CREATINE PHOSPHOKINASE MB INCREASED [None]
  - BLOOD PRESSURE DECREASED [None]
  - CARDIOMEGALY [None]
  - CORONARY ARTERY OCCLUSION [None]
  - DIZZINESS [None]
  - ECHOCARDIOGRAM ABNORMAL [None]
  - EJECTION FRACTION DECREASED [None]
  - ELECTROCARDIOGRAM ABNORMAL [None]
